FAERS Safety Report 7784285-X (Version None)
Quarter: 2011Q3

REPORT INFORMATION
  Report Type: 
  Country: None (occurrence: None)
  Receive Date: 20110928
  Receipt Date: 20110914
  Transmission Date: 20111222
  Serious: Yes (Hospitalization)
  Sender: FDA-Public Use
  Company Number: PHHY2011DE71146

PATIENT
  Sex: Male
  Weight: 94 kg

DRUGS (2)
  1. EXFORGE [Suspect]
     Indication: HYPERTENSION
     Dosage: UNK,
     Route: 048
  2. EXFORGE HCT [Suspect]
     Indication: HYPERTENSION
     Dosage: 1 DF (AMLODIPIN5 MG, VALSARTAN 160 MG, HYDROCHLOROTHIAZID 12.5 MG), QD
     Route: 048
     Dates: start: 20110301, end: 20110501

REACTIONS (9)
  - MUSCULOSKELETAL PAIN [None]
  - POOR QUALITY SLEEP [None]
  - TACHYCARDIA [None]
  - BACK PAIN [None]
  - HYPERHIDROSIS [None]
  - ABDOMINAL PAIN [None]
  - HEART RATE INCREASED [None]
  - NAUSEA [None]
  - OESOPHAGITIS [None]
